FAERS Safety Report 9230927 (Version 1)
Quarter: 2013Q2

REPORT INFORMATION
  Report Type: Spontaneous
  Country: AU (occurrence: AU)
  Receive Date: 20130415
  Receipt Date: 20130415
  Transmission Date: 20140414
  Serious: Yes (Other)
  Sender: FDA-Public Use
  Company Number: AU-ROCHE-1211907

PATIENT
  Sex: Male

DRUGS (7)
  1. AVASTIN [Suspect]
     Indication: PRODUCT USED FOR UNKNOWN INDICATION
     Route: 065
     Dates: start: 201210
  2. LEUCOVORIN [Concomitant]
     Route: 065
     Dates: start: 201208
  3. LEUCOVORIN [Concomitant]
     Route: 065
     Dates: start: 201210
  4. FLUOROURACIL [Concomitant]
     Route: 065
     Dates: start: 201208
  5. FLUOROURACIL [Concomitant]
     Route: 065
     Dates: start: 201210
  6. OXALIPLATIN [Concomitant]
     Route: 065
     Dates: start: 201208
  7. OXALIPLATIN [Concomitant]
     Route: 065
     Dates: start: 201210

REACTIONS (2)
  - Disease progression [Unknown]
  - Gastrointestinal disorder [Unknown]
